FAERS Safety Report 6810496-3 (Version None)
Quarter: 2010Q2

REPORT INFORMATION
  Report Type: 
  Country: None (occurrence: None)
  Receive Date: 20100630
  Receipt Date: 20100621
  Transmission Date: 20101027
  Serious: Yes (Other)
  Sender: FDA-Public Use
  Company Number: BR-PFIZER INC-2010077062

PATIENT
  Sex: Female

DRUGS (1)
  1. XALATAN [Suspect]
     Indication: GLAUCOMA
     Dosage: UNK
     Route: 047
     Dates: start: 20070101

REACTIONS (3)
  - BLINDNESS TRANSIENT [None]
  - EXPIRED DRUG ADMINISTERED [None]
  - OCULAR HYPERAEMIA [None]
